FAERS Safety Report 5097722-9 (Version None)
Quarter: 2006Q3

REPORT INFORMATION
  Report Type: 
  Country: None (occurrence: None)
  Receive Date: 20060901
  Receipt Date: 20060823
  Transmission Date: 20061208
  Serious: Yes (Death)
  Sender: FDA-Public Use
  Company Number: 146881USA

PATIENT
  Age: 57 Year
  Sex: Female
  Weight: 63.9572 kg

DRUGS (5)
  1. CLOZAPINE [Suspect]
     Indication: SCHIZOPHRENIA, PARANOID TYPE
     Dosage: 200 MILLIGRAM DAILY ORAL
     Route: 048
     Dates: start: 20001101
  2. HALDOL SOLUTAB [Concomitant]
  3. AMBIEN [Concomitant]
  4. LORAZEPAM [Concomitant]
  5. GEODON [Concomitant]

REACTIONS (4)
  - HEAT STROKE [None]
  - PNEUMONIA [None]
  - PRODUCTIVE COUGH [None]
  - SUDDEN DEATH [None]
